FAERS Safety Report 8416270-9 (Version None)
Quarter: 2012Q2

REPORT INFORMATION
  Report Type: 
  Country: None (occurrence: None)
  Receive Date: 20120530
  Receipt Date: 20120515
  Transmission Date: 20120825
  Serious: Yes (Hospitalization, Other)
  Sender: FDA-Public Use
  Company Number: JP-2012-15167

PATIENT
  Age: 60 Year
  Sex: Male

DRUGS (2)
  1. ASPIRIN [Concomitant]
  2. PLETAAL (CILOSTAZOL) ORODISPERSIDE TABLET [Suspect]
     Dosage: 200 MG MILLIGRAM(S), DAILY DOSE, ORAL
     Route: 048

REACTIONS (4)
  - RUPTURED CEREBRAL ANEURYSM [None]
  - THROMBOSIS IN DEVICE [None]
  - CEREBRAL INFARCTION [None]
  - SUBARACHNOID HAEMORRHAGE [None]
